FAERS Safety Report 22133793 (Version 2)
Quarter: 2023Q1

REPORT INFORMATION
  Report Type: Report from Study
  Country: CA (occurrence: CA)
  Receive Date: 20230324
  Receipt Date: 20230331
  Transmission Date: 20230417
  Serious: Yes (Other)
  Sender: FDA-Public Use
  Company Number: CA-JNJFOC-20230343483

PATIENT
  Age: 46 Year
  Sex: Female

DRUGS (1)
  1. SIMPONI [Suspect]
     Active Substance: GOLIMUMAB
     Indication: Ankylosing spondylitis
     Dosage: LAST INJECTED ON 22-MAR-2023
     Route: 058

REACTIONS (5)
  - Ankylosing spondylitis [Unknown]
  - Ear infection [Unknown]
  - Influenza [Unknown]
  - Fatigue [Unknown]
  - Dyspnoea [Unknown]
